FAERS Safety Report 6981405-1 (Version None)
Quarter: 2010Q3

REPORT INFORMATION
  Report Type: 
  Country: None (occurrence: None)
  Receive Date: 20100914
  Receipt Date: 20100909
  Transmission Date: 20110219
  Serious: Yes (Hospitalization)
  Sender: FDA-Public Use
  Company Number: DE-BRISTOL-MYERS SQUIBB COMPANY-15064306

PATIENT
  Age: 60 Year
  Sex: Female
  Weight: 42 kg

DRUGS (5)
  1. CETUXIMAB [Suspect]
     Indication: HEAD AND NECK CANCER
     Dosage: 5MG/ML;RECENT INF 29-MAR-2010 16TH INFUSION
     Route: 042
     Dates: start: 20091207, end: 20100329
  2. CISPLATIN [Suspect]
     Indication: HEAD AND NECK CANCER
     Dosage: RECENT INF: MAR2010;6TH INFUSION
     Route: 042
     Dates: start: 20091207, end: 20100322
  3. CILENGITIDE [Suspect]
     Indication: HEAD AND NECK CANCER
     Dosage: NO OF INFUSION=33
     Route: 042
     Dates: start: 20091207, end: 20100329
  4. FLUOROURACIL [Suspect]
     Indication: HEAD AND NECK CANCER
     Dosage: INFUSION FROM DAY 1 TO DAY 4 OF CYCLE 800MG/M2 RECENT INF: FEB 2010;4TH INFUSION
     Route: 042
     Dates: start: 20091207, end: 20100208
  5. METRONIDAZOLE [Concomitant]
     Dates: start: 20100407

REACTIONS (1)
  - ACUTE MYOCARDIAL INFARCTION [None]
